FAERS Safety Report 13077705 (Version 1)
Quarter: 2017Q1

REPORT INFORMATION
  Report Type: Spontaneous
  Country: US (occurrence: US)
  Receive Date: 20170101
  Receipt Date: 20170101
  Transmission Date: 20170428
  Serious: No
  Sender: FDA-Public Use
  Company Number: US-ASTRAZENECA-2016SF36058

PATIENT
  Age: 29003 Day
  Sex: Female
  Weight: 61.7 kg

DRUGS (4)
  1. TRIAMTERENE. [Concomitant]
     Active Substance: TRIAMTERENE
     Indication: HYPERTENSION
     Dosage: DAILY
     Route: 048
     Dates: start: 2001
  2. TUDORZA PRESSAIR [Suspect]
     Active Substance: ACLIDINIUM BROMIDE
     Indication: CHRONIC OBSTRUCTIVE PULMONARY DISEASE
     Dosage: TWO TIMES A DAY
     Route: 055
     Dates: start: 201609
  3. METHYLPREDNISOLONE. [Concomitant]
     Active Substance: METHYLPREDNISOLONE
     Indication: ARTHRITIS
     Route: 048
     Dates: start: 2014
  4. HYDROCHLROQUINONE [Concomitant]
     Indication: CENTRAL NERVOUS SYSTEM LUPUS
     Route: 048
     Dates: start: 2014

REACTIONS (3)
  - Drug dose omission [Unknown]
  - Device malfunction [Not Recovered/Not Resolved]
  - Dyspnoea [Not Recovered/Not Resolved]

NARRATIVE: CASE EVENT DATE: 20161221
